FAERS Safety Report 9892853 (Version 2)
Quarter: 2014Q1

REPORT INFORMATION
  Report Type: Spontaneous
  Country: US (occurrence: US)
  Receive Date: 20140213
  Receipt Date: 20140317
  Transmission Date: 20141002
  Serious: No
  Sender: FDA-Public Use
  Company Number: US-009507513-1402USA005394

PATIENT
  Age: 48 Year
  Sex: Female

DRUGS (4)
  1. DULERA [Suspect]
     Indication: ASTHMA
     Dosage: 2 DF (PUFFS), BID
     Route: 055
     Dates: start: 2013
  2. DULERA [Suspect]
     Indication: CHRONIC OBSTRUCTIVE PULMONARY DISEASE
  3. SPIRIVA [Concomitant]
  4. VENTOLIN (ALBUTEROL) [Concomitant]

REACTIONS (4)
  - Dyspnoea [Recovered/Resolved]
  - Incorrect dose administered [Unknown]
  - Product quality issue [Unknown]
  - Asthma [Recovered/Resolved]
